FAERS Safety Report 7824602-5 (Version None)
Quarter: 2011Q4

REPORT INFORMATION
  Report Type: 
  Country: None (occurrence: None)
  Receive Date: 20111019
  Receipt Date: 20111007
  Transmission Date: 20120403
  Serious: Yes (Other)
  Sender: FDA-Public Use
  Company Number: CA-ELI_LILLY_AND_COMPANY-CA201110001634

PATIENT
  Sex: Female

DRUGS (7)
  1. VALPROATE SODIUM [Concomitant]
  2. ATIVAN [Concomitant]
  3. COGENTIN [Concomitant]
  4. ZYPREXA [Suspect]
     Dosage: 20 MG, QD
  5. RISPERDAL [Concomitant]
  6. ZYPREXA [Suspect]
     Indication: PARANOID PERSONALITY DISORDER
     Dosage: 10 MG, QD
     Dates: start: 20030329
  7. ZYPREXA [Suspect]
     Dosage: 15 MG, QD

REACTIONS (21)
  - ABDOMINAL DISTENSION [None]
  - BLOOD PRESSURE ABNORMAL [None]
  - PARAESTHESIA [None]
  - INTESTINAL OBSTRUCTION [None]
  - BLADDER NEOPLASM [None]
  - RENAL CYST [None]
  - ABDOMINAL PAIN UPPER [None]
  - BLOOD PRESSURE DECREASED [None]
  - ASTHENIA [None]
  - DIZZINESS [None]
  - EPILEPSY [None]
  - VISUAL ACUITY REDUCED [None]
  - BLADDER PAIN [None]
  - DYSURIA [None]
  - WEIGHT INCREASED [None]
  - LOSS OF CONSCIOUSNESS [None]
  - DYSPNOEA [None]
  - NAUSEA [None]
  - CYSTITIS INTERSTITIAL [None]
  - PALPITATIONS [None]
  - HEADACHE [None]
